FAERS Safety Report 7527653-3 (Version None)
Quarter: 2011Q2

REPORT INFORMATION
  Report Type: 
  Country: None (occurrence: None)
  Receive Date: 20110527
  Receipt Date: 20110512
  Transmission Date: 20111010
  Serious: Yes (Hospitalization)
  Sender: FDA-Public Use
  Company Number: AUR-APL-2011-01483

PATIENT
  Age: 21 Year
  Sex: Male

DRUGS (5)
  1. AMISULPRIDE [Suspect]
     Dosage: 100MG
  2. CLOZAPINE [Suspect]
     Dosage: 500MG
  3. RISPERIDONE [Suspect]
     Dosage: 1MG-BID
  4. QUETIAPINE [Suspect]
  5. HALOPERIDOL [Suspect]

REACTIONS (6)
  - PARANOIA [None]
  - HALLUCINATION, AUDITORY [None]
  - WEIGHT DECREASED [None]
  - IMPAIRED SELF-CARE [None]
  - POSTURING [None]
  - NOCTURIA [None]
